FAERS Safety Report 11367095 (Version 1)
Quarter: 2015Q3

REPORT INFORMATION
  Report Type: Spontaneous
  Country: US (occurrence: US)
  Receive Date: 20150811
  Receipt Date: 20150811
  Transmission Date: 20151125
  Serious: No
  Sender: FDA-Public Use
  Company Number: US-ELI_LILLY_AND_COMPANY-US201110000990

PATIENT

DRUGS (2)
  1. ANDROGEL [Concomitant]
     Active Substance: TESTOSTERONE
  2. AXIRON [Suspect]
     Active Substance: TESTOSTERONE
     Indication: BLOOD TESTOSTERONE DECREASED
     Dosage: 60 MG, QD
     Dates: start: 201108

REACTIONS (6)
  - Rash [Unknown]
  - Musculoskeletal discomfort [Unknown]
  - Acne [Unknown]
  - Limb discomfort [Unknown]
  - Drug screen positive [Unknown]
  - Skin irritation [Unknown]
